FAERS Safety Report 5839632-2 (Version None)
Quarter: 2008Q3

REPORT INFORMATION
  Report Type: 
  Country: None (occurrence: None)
  Receive Date: 20080807
  Receipt Date: 20080702
  Transmission Date: 20090109
  Serious: Yes (Disabling)
  Sender: FDA-Public Use
  Company Number: WAES 0807USA01202

PATIENT

DRUGS (2)
  1. INDOCIN [Suspect]
     Indication: DEMENTIA ALZHEIMER'S TYPE
     Dosage: 100 MG/DAILY PO
     Route: 048
  2. OMEPRAZOLE [Concomitant]

REACTIONS (1)
  - LACUNAR INFARCTION [None]
